FAERS Safety Report 22537584 (Version 1)
Quarter: 2023Q2

REPORT INFORMATION
  Report Type: Spontaneous
  Country: US (occurrence: US)
  Receive Date: 20230608
  Receipt Date: 20230608
  Transmission Date: 20230721
  Serious: No
  Sender: FDA-Public Use
  Company Number: US-PFIZER INC-PV202300012681

PATIENT
  Age: 49 Year
  Sex: Female

DRUGS (1)
  1. CIBINQO [Suspect]
     Active Substance: ABROCITINIB
     Indication: Migraine
     Dosage: 100 MG, DAILY
     Route: 048

REACTIONS (2)
  - Herpes zoster [Unknown]
  - Off label use [Unknown]

NARRATIVE: CASE EVENT DATE: 20230101
